FAERS Safety Report 5939479-2 (Version None)
Quarter: 2008Q4

REPORT INFORMATION
  Report Type: 
  Country: None (occurrence: None)
  Receive Date: 20081103
  Receipt Date: 20081022
  Transmission Date: 20090506
  Serious: Yes (Other)
  Sender: FDA-Public Use
  Company Number: FR-GENENTECH-270338

PATIENT
  Sex: Female

DRUGS (2)
  1. XOLAIR [Suspect]
     Indication: ASTHMA
     Dosage: 450 MG, Q15D
     Route: 058
     Dates: start: 20080201
  2. XOLAIR [Suspect]
     Dosage: 450 MG, Q15D
     Route: 058
     Dates: start: 20050101, end: 20071101

REACTIONS (3)
  - ASTHMA [None]
  - DRUG RESISTANCE [None]
  - WEIGHT INCREASED [None]
